FAERS Safety Report 22370226 (Version 1)
Quarter: 2023Q2

REPORT INFORMATION
  Report Type: Report from Study
  Country: BR (occurrence: BR)
  Receive Date: 20230526
  Receipt Date: 20230526
  Transmission Date: 20230721
  Serious: Yes (Other)
  Sender: FDA-Public Use
  Company Number: BR-002147023-NVSC2023BR119490

PATIENT
  Sex: Male
  Weight: 74 kg

DRUGS (2)
  1. DEXAMETHASONE [Suspect]
     Active Substance: DEXAMETHASONE
     Indication: Product used for unknown indication
     Dosage: UNK
     Route: 065
  2. METHOTREXATE [Concomitant]
     Active Substance: METHOTREXATE
     Indication: Product used for unknown indication
     Dosage: UNK
     Route: 065

REACTIONS (10)
  - Glaucoma [Unknown]
  - Nail psoriasis [Unknown]
  - Onychomycosis [Unknown]
  - Nail infection [Unknown]
  - Nail bed bleeding [Unknown]
  - Paronychia [Unknown]
  - Anonychia [Unknown]
  - Psoriasis [Unknown]
  - Paraesthesia [Unknown]
  - Drug ineffective [Unknown]
